FAERS Safety Report 13093361 (Version 4)
Quarter: 2017Q1

REPORT INFORMATION
  Report Type: Spontaneous
  Country: IR (occurrence: IR)
  Receive Date: 20170106
  Receipt Date: 20170306
  Transmission Date: 20170428
  Serious: Yes (Life-Threatening, Other)
  Sender: FDA-Public Use
  Company Number: IR-GLAXOSMITHKLINE-IR2017GSK000414

PATIENT
  Age: 75 Year
  Sex: Female

DRUGS (2)
  1. IBUPROFEN. [Concomitant]
     Active Substance: IBUPROFEN
  2. VOLTAREN [Suspect]
     Active Substance: DICLOFENAC SODIUM
     Indication: BACK PAIN
     Dosage: 75 MG, UNK
     Route: 048
     Dates: start: 20161226, end: 20161226

REACTIONS (10)
  - Arrhythmia [Unknown]
  - Dyspnoea [Unknown]
  - Headache [Recovering/Resolving]
  - Pallor [Unknown]
  - Urticaria [Unknown]
  - Dizziness [Unknown]
  - Palpitations [Unknown]
  - Pruritus [Unknown]
  - Anaphylactic shock [Unknown]
  - Hypertension [Recovering/Resolving]

NARRATIVE: CASE EVENT DATE: 20161226
